FAERS Safety Report 23579525 (Version 1)
Quarter: 2024Q1

REPORT INFORMATION
  Report Type: Spontaneous
  Country: FR (occurrence: FR)
  Receive Date: 20240229
  Receipt Date: 20240229
  Transmission Date: 20240410
  Serious: Yes (Other)
  Sender: FDA-Public Use
  Company Number: FR-AFSSAPS-AVBX2023000462

PATIENT
  Age: 23 Year
  Sex: Male

DRUGS (1)
  1. PREGABALIN [Suspect]
     Active Substance: PREGABALIN
     Indication: Drug use disorder
     Dosage: UNK
     Route: 065
     Dates: start: 2023

REACTIONS (1)
  - Drug use disorder [Not Recovered/Not Resolved]
